FAERS Safety Report 18744249 (Version 1)
Quarter: 2021Q1

REPORT INFORMATION
  Report Type: Spontaneous
  Country: US (occurrence: US)
  Receive Date: 20210114
  Receipt Date: 20210114
  Transmission Date: 20210419
  Serious: Yes (Other)
  Sender: FDA-Public Use
  Company Number: US-009507513-2101USA004193

PATIENT
  Age: 62 Year
  Sex: Female

DRUGS (5)
  1. IDARUBICIN HYDROCHLORIDE. [Concomitant]
     Active Substance: IDARUBICIN HYDROCHLORIDE
     Indication: ACUTE MYELOID LEUKAEMIA
  2. NOXAFIL [Suspect]
     Active Substance: POSACONAZOLE
     Indication: ACUTE MYELOID LEUKAEMIA
     Dosage: PROPHYLACTIC DOSE
     Route: 048
  3. LEVAQUIN [Concomitant]
     Active Substance: LEVOFLOXACIN
     Indication: ACUTE MYELOID LEUKAEMIA
  4. ACYCLOVIR. [Concomitant]
     Active Substance: ACYCLOVIR
     Indication: ACUTE MYELOID LEUKAEMIA
  5. CYTARABINE. [Concomitant]
     Active Substance: CYTARABINE
     Indication: ACUTE MYELOID LEUKAEMIA

REACTIONS (1)
  - Acquired apparent mineralocorticoid excess [Recovered/Resolved]
